FAERS Safety Report 10885629 (Version 1)
Quarter: 2015Q1

REPORT INFORMATION
  Report Type: Spontaneous
  Country: US (occurrence: US)
  Receive Date: 20150304
  Receipt Date: 20150304
  Transmission Date: 20150721
  Serious: No
  Sender: FDA-Public Use
  Company Number: US-EISAI MEDICAL RESEARCH-EC-2015-004467

PATIENT
  Age: 57 Year
  Sex: Female
  Weight: 79 kg

DRUGS (4)
  1. BELVIQ [Suspect]
     Active Substance: LORCASERIN HYDROCHLORIDE
     Indication: WEIGHT DECREASED
     Route: 048
     Dates: start: 20150201
  2. DIOVAN [Concomitant]
     Active Substance: VALSARTAN
     Indication: HYPERTENSION
  3. SYNTHROID [Concomitant]
     Active Substance: LEVOTHYROXINE SODIUM
     Indication: THYROID THERAPY
  4. POTASSIUM [Concomitant]
     Active Substance: POTASSIUM
     Indication: SUPPLEMENTATION THERAPY

REACTIONS (1)
  - Weight increased [Not Recovered/Not Resolved]

NARRATIVE: CASE EVENT DATE: 20150201
